FAERS Safety Report 7760519-2 (Version None)
Quarter: 2011Q3

REPORT INFORMATION
  Report Type: 
  Country: None (occurrence: None)
  Receive Date: 20110919
  Receipt Date: 20110913
  Transmission Date: 20111222
  Serious: Yes (Death, Hospitalization)
  Sender: FDA-Public Use
  Company Number: ES-BAYER-2011-083195

PATIENT
  Sex: Female

DRUGS (1)
  1. MOXIFLOXACIN [Suspect]
     Dosage: 400 MG, QD
     Route: 048
     Dates: start: 20110901, end: 20110901

REACTIONS (8)
  - SYNCOPE [None]
  - MYOCARDIAL INFARCTION [None]
  - URTICARIA [None]
  - DYSPNOEA [None]
  - THROMBOSIS [None]
  - PRURITUS [None]
  - ANAPHYLACTIC SHOCK [None]
  - CEREBRAL INFARCTION [None]
